FAERS Safety Report 23958609 (Version 1)
Quarter: 2024Q2

REPORT INFORMATION
  Report Type: Spontaneous
  Country: DE (occurrence: DE)
  Receive Date: 20240610
  Receipt Date: 20240610
  Transmission Date: 20240716
  Serious: Yes (Hospitalization, Other)
  Sender: FDA-Public Use
  Company Number: None

PATIENT
  Age: 18 Year
  Sex: Male
  Weight: 70 kg

DRUGS (1)
  1. METHYLPHENIDATE [Suspect]
     Active Substance: METHYLPHENIDATE
     Indication: Attention deficit hyperactivity disorder
     Dosage: 20MG, METHYLPHENIDAT
     Route: 048
     Dates: start: 20240505, end: 20240516

REACTIONS (5)
  - Angina pectoris [Unknown]
  - Palpitations [Unknown]
  - Sinus arrhythmia [Unknown]
  - Tachycardia [Unknown]
  - Dizziness [Unknown]

NARRATIVE: CASE EVENT DATE: 20240516
